FAERS Safety Report 24737403 (Version 1)
Quarter: 2024Q4

REPORT INFORMATION
  Report Type: Spontaneous
  Country: US (occurrence: None)
  Receive Date: 20241213
  Receipt Date: 20241213
  Transmission Date: 20250114
  Serious: Yes (Hospitalization)
  Sender: Public
  Company Number: None

PATIENT
  Sex: Female

DRUGS (1)
  1. SILDENAFIL [Suspect]
     Active Substance: SILDENAFIL
     Indication: Neonatal pulmonary hypertension
     Dosage: 0.6ML 3 TIMES A DAY  VIA G-TUBE?
     Route: 050
     Dates: start: 202410

REACTIONS (2)
  - Weight decrease neonatal [None]
  - Neonatal pneumonia [None]
